FAERS Safety Report 5411928-8 (Version None)
Quarter: 2007Q3

REPORT INFORMATION
  Report Type: 
  Country: None (occurrence: None)
  Receive Date: 20070813
  Receipt Date: 20070807
  Transmission Date: 20080115
  Serious: Yes (Hospitalization)
  Sender: FDA-Public Use
  Company Number: FR-ELI_LILLY_AND_COMPANY-FR200704001882

PATIENT
  Age: 82 Year
  Sex: Female
  Weight: 49 kg

DRUGS (7)
  1. FORTEO [Suspect]
     Indication: OSTEOPOROSIS
     Dosage: 20 UG, DAILY (1/D)
     Route: 058
     Dates: start: 20051004, end: 20070121
  2. PROPRANOLOL HYDROCHLORIDE [Concomitant]
     Indication: HYPERTENSION
     Dosage: 0.5 D/F, 2/D
     Route: 048
     Dates: start: 20070101
  3. PROPRANOLOL HYDROCHLORIDE [Concomitant]
     Dosage: 2 D/F, DAILY (1/D)
     Route: 048
     Dates: start: 19810101, end: 20070101
  4. DIOSMIN [Concomitant]
     Indication: LYMPHATIC DISORDER
     Dosage: 1 D/F, DAILY (1/D)
     Route: 048
     Dates: start: 19960101
  5. OROCAL D(3) [Concomitant]
     Indication: OSTEOPOROSIS
     Dosage: 2 D/F, DAILY (1/D)
     Route: 048
     Dates: start: 19990101
  6. DOLIPRANE [Concomitant]
     Indication: PAIN
     Dosage: 2 D/F, DAILY (1/D)
     Route: 048
  7. DIANTALVIC [Concomitant]
     Indication: PAIN
     Dosage: 4 D/F, DAILY (1/D)
     Route: 048

REACTIONS (10)
  - BUNDLE BRANCH BLOCK LEFT [None]
  - CERVICAL VERTEBRAL FRACTURE [None]
  - EPISTAXIS [None]
  - FALL [None]
  - LEUKOARAIOSIS [None]
  - MALAISE [None]
  - MITRAL VALVE DISEASE [None]
  - PSEUDARTHROSIS [None]
  - RIB FRACTURE [None]
  - STERNAL FRACTURE [None]
